FAERS Safety Report 25360212 (Version 1)
Quarter: 2025Q2

REPORT INFORMATION
  Report Type: Spontaneous
  Country: US (occurrence: US)
  Receive Date: 20250527
  Receipt Date: 20250527
  Transmission Date: 20250716
  Serious: No
  Sender: ACCORD
  Company Number: US-Accord-458762

PATIENT
  Sex: Female

DRUGS (5)
  1. METHOTREXATE [Suspect]
     Active Substance: METHOTREXATE
     Indication: Product use in unapproved indication
  2. METFORMIN [Concomitant]
     Active Substance: METFORMIN HYDROCHLORIDE
  3. NALTREXONE [Concomitant]
     Active Substance: NALTREXONE
  4. MELOXICAM [Concomitant]
     Active Substance: MELOXICAM
  5. DULOXETINE [Concomitant]
     Active Substance: DULOXETINE

REACTIONS (1)
  - Headache [Unknown]
